FAERS Safety Report 18701100 (Version 5)
Quarter: 2022Q1

REPORT INFORMATION
  Report Type: Other
  Country: US (occurrence: None)
  Receive Date: 20210105
  Receipt Date: 20220324
  Transmission Date: 20220424
  Serious: Yes (Hospitalization, Other)
  Sender: FDA-Public Use
  Company Number: US-ROCHE-2743712

PATIENT
  Sex: Male
  Weight: 74.910 kg

DRUGS (6)
  1. ESBRIET [Suspect]
     Active Substance: PIRFENIDONE
     Indication: Idiopathic pulmonary fibrosis
     Dosage: TAKE 3 CAPSULE(S) BY MOUTH 3 TIMES A DAY
     Route: 048
  2. ESBRIET [Suspect]
     Active Substance: PIRFENIDONE
     Indication: Pneumonia
     Dosage: TAKE 3 CAPSULES BY MOUTH 3 TIMES A DAY
     Route: 048
  3. ESBRIET [Suspect]
     Active Substance: PIRFENIDONE
     Indication: Interstitial lung disease
     Dosage: TAKE 3 CAPSULES BY MOUTH 3 TIMES A DAY
     Route: 048
     Dates: start: 201803
  4. ESBRIET [Suspect]
     Active Substance: PIRFENIDONE
     Dosage: TAKE 3 CAPSULES BY MOUTH 3 TIMES A DAY
     Route: 048
  5. METOPROLOL [Concomitant]
     Active Substance: METOPROLOL
     Indication: Atrial fibrillation
     Route: 048
     Dates: start: 201711
  6. XALATAN [Concomitant]
     Active Substance: LATANOPROST
     Indication: Anticoagulant therapy
     Route: 048
     Dates: start: 201711

REACTIONS (14)
  - COVID-19 [Recovered/Resolved]
  - Fall [Unknown]
  - Fracture [Unknown]
  - Fatigue [Unknown]
  - Deafness [Unknown]
  - Palpitations [Unknown]
  - Heart rate increased [Unknown]
  - Arthralgia [Unknown]
  - Increased tendency to bruise [Unknown]
  - Weight increased [Unknown]
  - Thermal burn [Unknown]
  - Intentional product use issue [Unknown]
  - Hypoacusis [Unknown]
  - Intentional product misuse [Unknown]
